FAERS Safety Report 5072816-2 (Version None)
Quarter: 2006Q3

REPORT INFORMATION
  Report Type: 
  Country: None (occurrence: None)
  Receive Date: 20060802
  Receipt Date: 20060719
  Transmission Date: 20061208
  Serious: Yes (Life-Threatening, Hospitalization)
  Sender: FDA-Public Use
  Company Number: DEU-2006-0002312

PATIENT
  Age: 54 Year
  Sex: Male

DRUGS (12)
  1. PALLADONE [Suspect]
     Indication: PAIN
     Dosage: 8 MG TWICE ORAL
     Route: 048
     Dates: start: 20060623, end: 20060624
  2. FAMOSAN (FAMOTIDINE) [Concomitant]
  3. TRIMEPRANOL (METIPRANOLOL) [Concomitant]
  4. SILYMARIN [Concomitant]
  5. DOMPERIDONE [Concomitant]
  6. DETRALEX (DIOSMIN, HESPERIDIN) [Concomitant]
  7. FUROSEMIDE [Concomitant]
  8. PREDUCTAL (TRIMETAZIDINE) [Concomitant]
  9. KANAVIT (PHYTOMENADIONE) [Concomitant]
  10. VITAMIN B6 [Concomitant]
  11. FOLIC ACID [Concomitant]
  12. ZOLPIDEM [Concomitant]

REACTIONS (6)
  - FATIGUE [None]
  - HEPATIC FUNCTION ABNORMAL [None]
  - MALAISE [None]
  - OCULAR ICTERUS [None]
  - RENAL IMPAIRMENT [None]
  - URINE OUTPUT DECREASED [None]
